FAERS Safety Report 8342700-7 (Version None)
Quarter: 2012Q2

REPORT INFORMATION
  Report Type: 
  Country: None (occurrence: None)
  Receive Date: 20120502
  Receipt Date: 20120423
  Transmission Date: 20120825
  Serious: No
  Sender: FDA-Public Use
  Company Number: 2012SP022355

PATIENT

DRUGS (1)
  1. SAPHRIS [Suspect]
     Dates: start: 20120101, end: 20120101

REACTIONS (1)
  - DRUG HYPERSENSITIVITY [None]
